FAERS Safety Report 20740402 (Version 1)
Quarter: 2022Q2

REPORT INFORMATION
  Report Type: Spontaneous
  Country: US (occurrence: US)
  Receive Date: 20220422
  Receipt Date: 20220422
  Transmission Date: 20220721
  Serious: No
  Sender: FDA-Public Use
  Company Number: US-PFIZER INC-2021003733

PATIENT
  Age: 55 Year
  Sex: Female
  Weight: 83.91 kg

DRUGS (5)
  1. PREMARIN [Suspect]
     Active Substance: ESTROGENS, CONJUGATED
     Indication: Hormone replacement therapy
     Dosage: 0.9 MG, 1X/DAY
     Dates: start: 202001, end: 202011
  2. PREMARIN [Suspect]
     Active Substance: ESTROGENS, CONJUGATED
     Dosage: PATIENT SAID SOMETHING ABOUT TAKING A HALF DOSE AND BREAKING PILLS
  3. PREMARIN [Suspect]
     Active Substance: ESTROGENS, CONJUGATED
     Dosage: TAKE 2X0.9 MG TABLETS ON THE ODD DAYS AND 1X0.9 MG TABLET ON THE EVEN DAYS
  4. PREMARIN [Suspect]
     Active Substance: ESTROGENS, CONJUGATED
     Dosage: 2 OF THE 0.3MG PER DAY
  5. PREMARIN [Suspect]
     Active Substance: ESTROGENS, CONJUGATED
     Dosage: 1.25 MG

REACTIONS (2)
  - Alopecia [Unknown]
  - Intentional product use issue [Unknown]
